FAERS Safety Report 5013677-7 (Version None)
Quarter: 2006Q2

REPORT INFORMATION
  Report Type: 
  Country: None (occurrence: None)
  Receive Date: 20060525
  Receipt Date: 20060515
  Transmission Date: 20061013
  Serious: Yes (Hospitalization, Disabling)
  Sender: FDA-Public Use
  Company Number: HQWYE412220MAR06

PATIENT
  Age: 23 Year
  Sex: Female
  Weight: 108.05 kg

DRUGS (7)
  1. EFFEXOR XR [Suspect]
     Indication: DEPRESSION
     Dosage: 150 MG 1X PER 1 DAY, ORAL
     Route: 048
  2. TERBUTALINE SULFATE [Suspect]
     Indication: PREMATURE LABOUR
     Dosage: ^VARIABLE DOSE^, ORAL
     Route: 048
     Dates: start: 20051230, end: 20060120
  3. VALTREX [Suspect]
     Indication: HERPES SIMPLEX
     Dosage: 500 MG 1X PER 1 DAY, ORAL
     Route: 048
     Dates: start: 20051212, end: 20060119
  4. PRENATE 90 (DOCUSATE SODIUM/MINERALS NOS/VITAMINS NOS) [Concomitant]
  5. ZANTAC [Concomitant]
  6. TERAZOL (TERCONAZOLE) [Concomitant]
  7. CORTISPORIN (HYDROCORTISONE ACETATE/NEOMYCIN SULFATE/POLYMYXIN B SULFA [Concomitant]

REACTIONS (13)
  - ACUTE FATTY LIVER OF PREGNANCY [None]
  - CAESAREAN SECTION [None]
  - DRUG EXPOSURE DURING PREGNANCY [None]
  - DRUG EXPOSURE VIA BREAST MILK [None]
  - DYSPEPSIA [None]
  - EAR PAIN [None]
  - GESTATIONAL DIABETES [None]
  - HEPATIC ENZYME INCREASED [None]
  - HEPATIC STEATOSIS [None]
  - HERPES SIMPLEX [None]
  - PREGNANCY [None]
  - PREMATURE LABOUR [None]
  - VULVOVAGINAL MYCOTIC INFECTION [None]
